FAERS Safety Report 6676881-8 (Version None)
Quarter: 2010Q2

REPORT INFORMATION
  Report Type: 
  Country: None (occurrence: None)
  Receive Date: 20100409
  Receipt Date: 20100409
  Transmission Date: 20101027
  Serious: No
  Sender: FDA-Public Use
  Company Number: None

PATIENT
  Age: 83 Year
  Sex: Male
  Weight: 77.1115 kg

DRUGS (2)
  1. OMEPRAZOLE [Suspect]
     Dosage: 1 CAPSULE TWICE A DAY TWICE A DAY BY MOUTH
     Route: 048
     Dates: start: 20100310, end: 20100318
  2. NEXIUM [Suspect]
     Dosage: 1 CAPSULE EVERY DAY BY MOUTH
     Route: 048
     Dates: start: 20100319

REACTIONS (4)
  - HYPERSENSITIVITY [None]
  - INSOMNIA [None]
  - RASH MACULAR [None]
  - URTICARIA [None]
